FAERS Safety Report 22621310 (Version 2)
Quarter: 2024Q1

REPORT INFORMATION
  Report Type: Spontaneous
  Country: JP (occurrence: JP)
  Receive Date: 20230620
  Receipt Date: 20240112
  Transmission Date: 20240409
  Serious: Yes (Death, Life-Threatening, Other)
  Sender: FDA-Public Use
  Company Number: JP-DSJP-DSJ-2023-124232

PATIENT
  Age: 53 Year
  Sex: Male
  Weight: 72.6 kg

DRUGS (1)
  1. ENHERTU [Suspect]
     Active Substance: FAM-TRASTUZUMAB DERUXTECAN-NXKI
     Indication: HER2 positive gastric cancer
     Dosage: 6.4 MG/KG, ONCE EVERY 3 WK
     Route: 041
     Dates: start: 20230513, end: 20230513

REACTIONS (5)
  - Febrile neutropenia [Recovered/Resolved with Sequelae]
  - Shock haemorrhagic [Recovering/Resolving]
  - Septic shock [Recovered/Resolved with Sequelae]
  - Disease progression [Fatal]
  - Pneumonia [Not Recovered/Not Resolved]

NARRATIVE: CASE EVENT DATE: 20230101
